FAERS Safety Report 16527082 (Version 8)
Quarter: 2021Q2

REPORT INFORMATION
  Report Type: Spontaneous
  Country: US (occurrence: US)
  Receive Date: 20190703
  Receipt Date: 20210617
  Transmission Date: 20210716
  Serious: Yes (Other)
  Sender: FDA-Public Use
  Company Number: US-PFIZER INC-2019286308

PATIENT
  Age: 65 Year
  Sex: Male
  Weight: 77 kg

DRUGS (3)
  1. METFORMIN [Concomitant]
     Active Substance: METFORMIN HYDROCHLORIDE
     Dosage: UNK
  2. LYRICA [Suspect]
     Active Substance: PREGABALIN
     Indication: NEUROPATHY PERIPHERAL
     Dosage: 200 MG, 2X/DAY
     Dates: start: 2015
  3. LYRICA [Suspect]
     Active Substance: PREGABALIN
     Dosage: UNK (UP THE MILLIGRAMS)

REACTIONS (5)
  - Asthenia [Unknown]
  - Skin burning sensation [Unknown]
  - Memory impairment [Unknown]
  - Abdominal pain [Unknown]
  - Blindness [Unknown]
